FAERS Safety Report 21291554 (Version 1)
Quarter: 2022Q3

REPORT INFORMATION
  Report Type: Spontaneous
  Country: CN (occurrence: CN)
  Receive Date: 20220903
  Receipt Date: 20220903
  Transmission Date: 20221027
  Serious: Yes (Life-Threatening, Other)
  Sender: FDA-Public Use
  Company Number: None

PATIENT
  Age: 35 Year
  Sex: Male

DRUGS (5)
  1. SODIUM CHLORIDE [Suspect]
     Active Substance: SODIUM CHLORIDE
     Indication: Vehicle solution use
     Dosage: 100 MILLILITERS (ML) ONCE DAILY
     Route: 041
     Dates: start: 20220823, end: 20220826
  2. DEXTROSE MONOHYDRATE\SODIUM CHLORIDE [Suspect]
     Active Substance: DEXTROSE MONOHYDRATE\SODIUM CHLORIDE
     Dosage: 500 MILLILITERS (ML) ONCE DAILY
     Route: 041
     Dates: start: 20220819, end: 20220823
  3. POTASSIUM CHLORIDE [Suspect]
     Active Substance: POTASSIUM CHLORIDE
     Dosage: 1.5 GRAMS (G) ONCE DAILY
     Route: 041
     Dates: start: 20220819, end: 20220823
  4. VITAMINS [Suspect]
     Active Substance: VITAMINS
     Indication: Nutritional supplementation
     Dosage: 1 VIAL ONCE DAILY WITH GLUCOSE AND SODIUM CHLORIDE INJECTION AND POTASSIUM CHLORIDE INJECTION
     Route: 041
     Dates: start: 20220819, end: 20220823
  5. VITAMINS [Suspect]
     Active Substance: VITAMINS
     Dosage: 1 VIAL (PIECE) ONCE DAILY WITH SODIUM CHLORIDE INJECTION
     Route: 041
     Dates: start: 20220823, end: 20220826

REACTIONS (4)
  - Chest discomfort [Recovering/Resolving]
  - Dyspnoea [Recovering/Resolving]
  - Seizure [Recovering/Resolving]
  - Hyperhidrosis [Recovering/Resolving]

NARRATIVE: CASE EVENT DATE: 20220826
